FAERS Safety Report 18330390 (Version 2)
Quarter: 2021Q1

REPORT INFORMATION
  Report Type: Report from Study
  Country: US (occurrence: US)
  Receive Date: 20200930
  Receipt Date: 20210330
  Transmission Date: 20210419
  Serious: Yes (Other)
  Sender: FDA-Public Use
  Company Number: NVSC2020US265107

PATIENT
  Age: 55 Year
  Sex: Male

DRUGS (1)
  1. ENTRESTO [Suspect]
     Active Substance: SACUBITRIL\VALSARTAN
     Indication: CARDIAC FAILURE
     Dosage: 200 (97/103) MG, BID
     Route: 048
     Dates: start: 20191012

REACTIONS (2)
  - Myocardial infarction [Unknown]
  - Heart rate increased [Unknown]

NARRATIVE: CASE EVENT DATE: 202006
